FAERS Safety Report 7355995-3 (Version None)
Quarter: 2011Q1

REPORT INFORMATION
  Report Type: 
  Country: None (occurrence: None)
  Receive Date: 20110316
  Receipt Date: 20110221
  Transmission Date: 20110831
  Serious: No
  Sender: FDA-Public Use
  Company Number: US-ABBOTT-11P-163-0707262-00

PATIENT
  Sex: Female
  Weight: 72.64 kg

DRUGS (6)
  1. CYMBALTA [Concomitant]
     Indication: DEPRESSION
  2. FISH OIL [Concomitant]
     Indication: BLOOD CHOLESTEROL
  3. MULTI-VITAMIN [Concomitant]
     Indication: VITAMIN SUPPLEMENTATION
  4. LOPRESSOR [Concomitant]
     Indication: HYPERTENSION
  5. TRILIPIX [Suspect]
     Indication: BLOOD TRIGLYCERIDES INCREASED
     Dates: start: 20100901, end: 20110217
  6. ASPIRIN [Concomitant]
     Indication: PRODUCT USED FOR UNKNOWN INDICATION

REACTIONS (7)
  - TENDONITIS [None]
  - PAIN IN EXTREMITY [None]
  - JOINT SWELLING [None]
  - ARTHRALGIA [None]
  - TENOSYNOVITIS [None]
  - OEDEMA PERIPHERAL [None]
  - HEPATIC ENZYME INCREASED [None]
